FAERS Safety Report 4319497-0 (Version None)
Quarter: 2004Q1

REPORT INFORMATION
  Report Type: 
  Country: None (occurrence: None)
  Receive Date: 20040319
  Receipt Date: 20040309
  Transmission Date: 20041129
  Serious: Yes (Death)
  Sender: FDA-Public Use
  Company Number: PHRM2004FR01107

PATIENT
  Age: 77 Year
  Sex: Female
  Weight: 66 kg

DRUGS (12)
  1. GLEEVEC [Suspect]
     Indication: GASTROINTESTINAL STROMAL TUMOUR
     Dosage: 400 MG, DAILY
     Route: 048
     Dates: start: 20031205, end: 20040112
  2. ADANCOR [Suspect]
     Route: 048
     Dates: end: 20040116
  3. MEDIATENSYL [Suspect]
     Route: 048
     Dates: end: 20040116
  4. STABLON [Suspect]
     Route: 048
     Dates: end: 20040116
  5. CORDARONE [Suspect]
     Route: 048
     Dates: start: 20031206, end: 20040114
  6. LASIX [Concomitant]
  7. TARDYFER [Concomitant]
     Dosage: 2 DF, DAILY
  8. UMULINE [Concomitant]
  9. NITROGLYCERIN [Concomitant]
     Route: 003
  10. GLUCOR [Concomitant]
  11. BACICOLINE [Concomitant]
  12. TOBREX [Concomitant]

REACTIONS (1)
  - TOXIC EPIDERMAL NECROLYSIS [None]
